FAERS Safety Report 7725844-X (Version None)
Quarter: 2011Q3

REPORT INFORMATION
  Report Type: 
  Country: None (occurrence: None)
  Receive Date: 20110902
  Receipt Date: 20110826
  Transmission Date: 20111222
  Serious: Yes (Other)
  Sender: FDA-Public Use
  Company Number: US-AMGEN-USASP2011044247

PATIENT
  Sex: Female

DRUGS (1)
  1. PROLIA [Suspect]
     Indication: OSTEOPOROSIS POSTMENOPAUSAL
     Dosage: 60 MG, Q6MO
     Dates: start: 20110822

REACTIONS (5)
  - IMPAIRED DRIVING ABILITY [None]
  - NEUTROPHIL COUNT ABNORMAL [None]
  - PAIN IN EXTREMITY [None]
  - HYPERSENSITIVITY [None]
  - GAIT DISTURBANCE [None]
